FAERS Safety Report 6696201-2 (Version None)
Quarter: 2010Q2

REPORT INFORMATION
  Report Type: 
  Country: None (occurrence: None)
  Receive Date: 20100426
  Receipt Date: 20100415
  Transmission Date: 20101027
  Serious: Yes (Hospitalization)
  Sender: FDA-Public Use
  Company Number: US-ALEXION-A201000220

PATIENT
  Sex: Male

DRUGS (13)
  1. SOLIRIS [Suspect]
     Indication: PAROXYSMAL NOCTURNAL HAEMOGLOBINURIA
     Dosage: 600 MG, QW
     Route: 042
     Dates: start: 20070521, end: 20070611
  2. SOLIRIS [Suspect]
     Dosage: 900 MG, Q2W
     Route: 042
     Dates: start: 20070618
  3. SOLIRIS [Suspect]
     Dosage: 900 MG, Q12D
     Route: 042
  4. SOLIRIS [Suspect]
     Dosage: 1200 MG, Q14D
     Route: 042
  5. OMEPRAZOLE [Concomitant]
     Dosage: 40 MG, QD
  6. FOLIC ACID [Concomitant]
     Dosage: 1 MG, QD
  7. VALERIAN ROOT                      /01561603/ [Concomitant]
  8. POTASSIUM CHLORIDE [Concomitant]
     Dosage: 10 MEQ 3 TABLETS
  9. SINGULAIR [Concomitant]
     Dosage: 10 MG, AT BEDTIME
     Route: 048
  10. VITAMIN B-12 [Concomitant]
     Dosage: 500 MCG X 2
  11. ZANTAC                             /00550802/ [Concomitant]
  12. PROVENTIL                          /00139501/ [Concomitant]
     Dosage: 4 PUFFS
  13. CALCITROL                          /00508501/ [Concomitant]
     Dosage: 0.25 MCG QOD

REACTIONS (13)
  - ASTHENIA [None]
  - CHEST DISCOMFORT [None]
  - DIZZINESS [None]
  - DYSPNOEA [None]
  - FALL [None]
  - HEPATITIS [None]
  - HYPERHIDROSIS [None]
  - HYPOAESTHESIA [None]
  - HYPOKALAEMIA [None]
  - MALAISE [None]
  - PRESYNCOPE [None]
  - PULMONARY HYPERTENSION [None]
  - RENAL FAILURE [None]
